FAERS Safety Report 18372392 (Version 1)
Quarter: 2020Q4

REPORT INFORMATION
  Report Type: Spontaneous
  Country: DE (occurrence: DE)
  Receive Date: 20201012
  Receipt Date: 20201012
  Transmission Date: 20210114
  Serious: Yes (Hospitalization)
  Sender: FDA-Public Use
  Company Number: DE-TEVA-2020-DE-1836386

PATIENT
  Age: 43 Year
  Sex: Female

DRUGS (14)
  1. PREDNISOLONE. [Suspect]
     Active Substance: PREDNISOLONE
     Dosage: 5 MILLIGRAM DAILY; 1-0-0-0
  2. DRONEDARONE [Concomitant]
     Active Substance: DRONEDARONE
     Dosage: 40 MG, 1-0-1-0, UNIT DOSE:  80 MG
     Route: 048
  3. IBUPROFEN. [Suspect]
     Active Substance: IBUPROFEN
     Dosage: 600 MG, 1-0-1-0, UNIT DOSE :  1200 MG
     Route: 048
  4. PANTOPRAZOL [Concomitant]
     Active Substance: PANTOPRAZOLE SODIUM
     Dosage: 40 MILLIGRAM DAILY; 1-0-0-0
  5. RAMIPRIL. [Concomitant]
     Active Substance: RAMIPRIL
     Dosage: 2.5 MILLIGRAM DAILY; 1-0-0-0
  6. INSULIN LISPRO [Concomitant]
     Active Substance: INSULIN LISPRO
     Dosage: NK MG, ACCORDING TO THE SCHEME
  7. LEVOTHYROXIN [Concomitant]
     Active Substance: LEVOTHYROXINE
     Dosage: 150 MICROGRAM DAILY; 1-0-0-0
  8. VALSARTAN. [Concomitant]
     Active Substance: VALSARTAN
     Dosage: 80 MILLIGRAM DAILY; 1-0-0-0
     Route: 048
  9. METOPROLOL. [Concomitant]
     Active Substance: METOPROLOL
     Dosage: 95 MG, 1-0-1-0, UNIT DOSE : 190 MG
  10. AMITRIPTYLINE [Concomitant]
     Active Substance: AMITRIPTYLINE
     Dosage: 25 MILLIGRAM DAILY; 0-0-1-0
  11. TORASEMID [Concomitant]
     Active Substance: TORSEMIDE
     Dosage: 10 MILLIGRAM DAILY; 1-0-0-0
  12. LORAZEPAM. [Concomitant]
     Active Substance: LORAZEPAM
     Dosage: UNIT DOSE :1MG, IF NECESSARY
  13. INSULIN GLARGINE [Concomitant]
     Active Substance: INSULIN GLARGINE
     Dosage: NK MG, ACCORDING TO THE SCHEME
  14. LEVETIRACETAM. [Concomitant]
     Active Substance: LEVETIRACETAM
     Dosage: 1000 MG, 1-0-1-0, UNIT DOSE : 2000 MG
     Route: 048

REACTIONS (3)
  - General physical health deterioration [Unknown]
  - Angina pectoris [Unknown]
  - Electrolyte imbalance [Unknown]
